FAERS Safety Report 5747358-9 (Version None)
Quarter: 2008Q2

REPORT INFORMATION
  Report Type: 
  Country: None (occurrence: None)
  Receive Date: 20080523
  Receipt Date: 20080417
  Transmission Date: 20081010
  Serious: No
  Sender: FDA-Public Use
  Company Number: US-BAYER-200820912NA

PATIENT
  Age: 33 Year
  Sex: Female
  Weight: 75 kg

DRUGS (3)
  1. YAZ [Suspect]
     Indication: CONTRACEPTION
     Route: 048
     Dates: start: 20080101
  2. WELLBUTRIN XL [Concomitant]
  3. AMBIEN CR [Concomitant]

REACTIONS (1)
  - AMENORRHOEA [None]
